FAERS Safety Report 23054029 (Version 1)
Quarter: 2023Q4

REPORT INFORMATION
  Report Type: Spontaneous
  Country: US (occurrence: US)
  Receive Date: 20231011
  Receipt Date: 20231011
  Transmission Date: 20240110
  Serious: No
  Sender: FDA-Public Use
  Company Number: US-MICRO LABS LIMITED-ML2023-05632

PATIENT
  Age: 81 Year
  Sex: Female

DRUGS (1)
  1. TRAVOPROST [Suspect]
     Active Substance: TRAVOPROST
     Indication: Glaucoma
     Dosage: DOSE: 1 DROP IN BOTH EYES; FREQUENCY: NIGHTTIME (BEDTIME)
     Route: 047

REACTIONS (2)
  - Product container issue [Unknown]
  - Product dose omission issue [Unknown]
